FAERS Safety Report 10467417 (Version 3)
Quarter: 2015Q1

REPORT INFORMATION
  Report Type: Spontaneous
  Country: US (occurrence: US)
  Receive Date: 20140922
  Receipt Date: 20150305
  Transmission Date: 20150720
  Serious: Yes (Death, Hospitalization, Other)
  Sender: FDA-Public Use
  Company Number: US-009507513-1409USA009870

PATIENT
  Sex: Female
  Weight: 90.7 kg

DRUGS (2)
  1. JANUMET [Suspect]
     Active Substance: METFORMIN HYDROCHLORIDE\SITAGLIPTIN PHOSPHATE
     Dosage: 50-1000MG, BID
     Route: 048
     Dates: start: 20070813, end: 20130120
  2. JANUMET [Suspect]
     Active Substance: METFORMIN HYDROCHLORIDE\SITAGLIPTIN PHOSPHATE
     Indication: DIABETES MELLITUS
     Dosage: 50-500MG, BID
     Route: 048
     Dates: start: 20070810, end: 20070812

REACTIONS (35)
  - Coagulopathy [Unknown]
  - Gait disturbance [Unknown]
  - Stent placement [Unknown]
  - Fall [Unknown]
  - Anxiety [Unknown]
  - Metastases to liver [Unknown]
  - Hemiparesis [Unknown]
  - Pain [Not Recovered/Not Resolved]
  - Pain in extremity [Unknown]
  - Transfusion [Unknown]
  - Muscular weakness [Unknown]
  - Diabetes mellitus inadequate control [Unknown]
  - Inguinal hernia [Unknown]
  - Arthritis [Unknown]
  - Peripheral vascular disorder [Unknown]
  - Epistaxis [Recovered/Resolved]
  - Balance disorder [Unknown]
  - Haematoma [Unknown]
  - Hypoxia [Unknown]
  - Chronic obstructive pulmonary disease [Not Recovered/Not Resolved]
  - Fall [Unknown]
  - Pharyngitis [Unknown]
  - Factor V deficiency [Unknown]
  - Pancreatic carcinoma [Fatal]
  - Haemorrhagic anaemia [Unknown]
  - Neuropathy peripheral [Unknown]
  - Liver function test abnormal [Unknown]
  - Rhinitis [Unknown]
  - Deep vein thrombosis [Not Recovered/Not Resolved]
  - Osteoarthritis [Unknown]
  - Malnutrition [Unknown]
  - Oedema [Unknown]
  - Back pain [Not Recovered/Not Resolved]
  - Radiotherapy [Unknown]
  - Decubitus ulcer [Unknown]

NARRATIVE: CASE EVENT DATE: 200911
